FAERS Safety Report 23349837 (Version 1)
Quarter: 2023Q4

REPORT INFORMATION
  Report Type: Spontaneous
  Country: US (occurrence: US)
  Receive Date: 20231229
  Receipt Date: 20231229
  Transmission Date: 20240110
  Serious: Yes (Other)
  Sender: FDA-Public Use
  Company Number: US-BRISTOL-MYERS SQUIBB COMPANY-2023-187473

PATIENT
  Age: 76 Year
  Sex: Female
  Weight: 74.39 kg

DRUGS (4)
  1. REVLIMID [Suspect]
     Active Substance: LENALIDOMIDE
     Indication: Lymphoma
     Route: 048
  2. ELIQUIS [Concomitant]
     Active Substance: APIXABAN
     Indication: Product used for unknown indication
  3. QUETIAPINE FUMARATE [Concomitant]
     Active Substance: QUETIAPINE FUMARATE
     Indication: Product used for unknown indication
  4. NITROFURANTOIN [Concomitant]
     Active Substance: NITROFURANTOIN
     Indication: Product used for unknown indication

REACTIONS (12)
  - Amnesia [Unknown]
  - Visual impairment [Unknown]
  - Nasal cavity cancer [Recovering/Resolving]
  - Anxiety [Unknown]
  - Stress [Unknown]
  - Feeling jittery [Unknown]
  - Sleep disorder [Unknown]
  - Dry skin [Unknown]
  - Constipation [Unknown]
  - Flatulence [Unknown]
  - Cystitis [Unknown]
  - Gastrointestinal disorder [Unknown]
